FAERS Safety Report 16895473 (Version 2)
Quarter: 2019Q4

REPORT INFORMATION
  Report Type: Spontaneous
  Country: CN (occurrence: CN)
  Receive Date: 20191008
  Receipt Date: 20191017
  Transmission Date: 20200122
  Serious: Yes (Other)
  Sender: FDA-Public Use
  Company Number: CN-ASTRAZENECA-2019SF42097

PATIENT
  Age: 76 Year
  Sex: Female
  Weight: 50 kg

DRUGS (4)
  1. IRESSA [Suspect]
     Active Substance: GEFITINIB
     Indication: NON-SMALL CELL LUNG CANCER
     Route: 048
     Dates: end: 201906
  2. BIEJIARANGAN TROCHE [Concomitant]
     Indication: HEPATIC FIBROSIS
     Route: 048
  3. BIEJIARANGAN TROCHE [Concomitant]
     Indication: HEPATIC CIRRHOSIS
     Route: 048
  4. ADEFOVIR DIPIVOXIL. [Concomitant]
     Active Substance: ADEFOVIR DIPIVOXIL

REACTIONS (6)
  - Metastases to central nervous system [Unknown]
  - Hydrothorax [Unknown]
  - Drug resistance [Unknown]
  - Gene mutation [Unknown]
  - Pleural effusion [Unknown]
  - Malignant neoplasm progression [Unknown]

NARRATIVE: CASE EVENT DATE: 2019
